FAERS Safety Report 13343730 (Version 3)
Quarter: 2017Q2

REPORT INFORMATION
  Report Type: Report from Study
  Country: US (occurrence: US)
  Receive Date: 20170316
  Receipt Date: 20170405
  Transmission Date: 20170830
  Serious: No
  Sender: FDA-Public Use
  Company Number: PHEH2017US006265

PATIENT
  Sex: Male

DRUGS (1)
  1. COSENTYX [Suspect]
     Active Substance: SECUKINUMAB
     Indication: PRODUCT USED FOR UNKNOWN INDICATION
     Dosage: 2 DF, QW
     Route: 065
     Dates: start: 20170131

REACTIONS (5)
  - Inappropriate schedule of drug administration [Unknown]
  - Injection site injury [Unknown]
  - Needle issue [Unknown]
  - Injection site erythema [Unknown]
  - Erythema [Unknown]
